FAERS Safety Report 13276209 (Version 2)
Quarter: 2017Q1

REPORT INFORMATION
  Report Type: Spontaneous
  Country: US (occurrence: US)
  Receive Date: 20170228
  Receipt Date: 20170314
  Transmission Date: 20170428
  Serious: Yes (Other)
  Sender: FDA-Public Use
  Company Number: US-GLAXOSMITHKLINE-US2017026708

PATIENT
  Sex: Male

DRUGS (1)
  1. ANORO ELLIPTA [Suspect]
     Active Substance: UMECLIDINIUM BROMIDE\VILANTEROL TRIFENATATE
     Indication: DYSPNOEA
     Dosage: UNK, Z
     Dates: start: 201611

REACTIONS (6)
  - Cardiac flutter [Unknown]
  - Drug ineffective [Unknown]
  - Intentional product misuse [Unknown]
  - Product use issue [Unknown]
  - Dyspnoea [Unknown]
  - Heart rate increased [Unknown]
